FAERS Safety Report 6880004-X (Version None)
Quarter: 2010Q3

REPORT INFORMATION
  Report Type: 
  Country: None (occurrence: None)
  Receive Date: 20100728
  Receipt Date: 20100720
  Transmission Date: 20110219
  Serious: Yes (Other)
  Sender: FDA-Public Use
  Company Number: PHHY2010US30634

PATIENT
  Sex: Male

DRUGS (1)
  1. FOCALIN XR [Suspect]
     Dosage: 15 MG, UNK
     Route: 048

REACTIONS (1)
  - CATARACT SUBCAPSULAR [None]
